FAERS Safety Report 8223344-4 (Version None)
Quarter: 2012Q1

REPORT INFORMATION
  Report Type: 
  Country: None (occurrence: None)
  Receive Date: 20120314
  Receipt Date: 20120229
  Transmission Date: 20120608
  Serious: Yes (Life-Threatening, Hospitalization, Other)
  Sender: FDA-Public Use
  Company Number: FR-JNJFOC-20120205241

PATIENT
  Age: 70 Year
  Sex: Female
  Weight: 85 kg

DRUGS (2)
  1. DECITABINE [Suspect]
     Indication: ACUTE MYELOID LEUKAEMIA
     Dosage: 20 MG/M2, 1 IN 1 D, INTRAVENOUS
     Route: 042
     Dates: start: 20120102, end: 20120106
  2. DECITABINE [Suspect]
     Indication: ACUTE MYELOID LEUKAEMIA
     Dosage: 20 MG/M2, 1 IN 1 D, INTRAVENOUS
     Route: 042
     Dates: start: 20120227, end: 20120227

REACTIONS (6)
  - BACTERIAL SEPSIS [None]
  - VISUAL IMPAIRMENT [None]
  - HAEMOGLOBIN DECREASED [None]
  - PERIODONTITIS [None]
  - TOOTH INFECTION [None]
  - THROMBOCYTOPENIA [None]
